FAERS Safety Report 18475217 (Version 1)
Quarter: 2020Q4

REPORT INFORMATION
  Report Type: Spontaneous
  Country: JP (occurrence: JP)
  Receive Date: 20201106
  Receipt Date: 20201106
  Transmission Date: 20210114
  Serious: Yes (Death, Other)
  Sender: FDA-Public Use
  Company Number: JP-GILEAD-2020-0496074

PATIENT
  Age: 77 Year
  Sex: Male
  Weight: 52.7 kg

DRUGS (9)
  1. HEPARIN SODIUM. [Concomitant]
     Active Substance: HEPARIN SODIUM
     Indication: COVID-19
     Dosage: 20000 IU, QD
     Route: 041
     Dates: start: 20200910, end: 20200921
  2. DECADRON (DEXAMETHASONE SODIUM PHOSPHATE) [Concomitant]
     Active Substance: DEXAMETHASONE SODIUM PHOSPHATE
     Indication: COVID-19
     Dosage: 6.6, QD
     Route: 041
     Dates: start: 20200910, end: 20200921
  3. MEROPENEM. [Concomitant]
     Active Substance: MEROPENEM
     Indication: PNEUMONIA
     Dosage: 1 G, TID
     Route: 041
     Dates: start: 20200915, end: 20200917
  4. REMDESIVIR. [Suspect]
     Active Substance: REMDESIVIR
     Indication: COVID-19
     Dosage: 200 MG, QD
     Route: 041
     Dates: start: 20200914
  5. COAHIBITOR [Concomitant]
     Active Substance: NAFAMOSTAT MESYLATE
     Indication: COVID-19
     Dosage: 150 MG, QD
     Route: 041
     Dates: start: 20200910, end: 20200921
  6. SULBACILLIN [Concomitant]
     Active Substance: AMPICILLIN SODIUM\SULBACTAM SODIUM
     Indication: COVID-19
  7. REMDESIVIR. [Suspect]
     Active Substance: REMDESIVIR
     Indication: COVID-19
     Dosage: 100 MG, QD
     Route: 041
     Dates: start: 20200915, end: 20200916
  8. OMEPRAZOLE. [Concomitant]
     Active Substance: OMEPRAZOLE
     Indication: GASTRIC ULCER
     Dosage: 20 MG, BID
     Route: 041
     Dates: start: 20200910, end: 20200921
  9. MORPHINE HYDROCHLORIDE [Concomitant]
     Active Substance: MORPHINE HYDROCHLORIDE
     Indication: COVID-19
     Dosage: 10 MG, QD
     Route: 041
     Dates: start: 20200913, end: 20200921

REACTIONS (5)
  - Renal failure [Fatal]
  - Hyperkalaemia [Fatal]
  - Disseminated intravascular coagulation [Fatal]
  - COVID-19 [Fatal]
  - Renal impairment [Fatal]

NARRATIVE: CASE EVENT DATE: 20200917
